FAERS Safety Report 9692700 (Version 2)
Quarter: 2013Q4

REPORT INFORMATION
  Report Type: Report from Study
  Country: NL (occurrence: NL)
  Receive Date: 20131118
  Receipt Date: 20131130
  Transmission Date: 20140711
  Serious: Yes (Death)
  Sender: FDA-Public Use
  Company Number: PHHY2013NL130919

PATIENT
  Age: 76 Year
  Sex: Female

DRUGS (3)
  1. ACLASTA [Suspect]
     Indication: OSTEOPOROSIS
     Dosage: 5 MG, ONCE EVERY 52 WEEKS
     Route: 042
     Dates: start: 20101119
  2. ACLASTA [Suspect]
     Dosage: 5 MG, ONCE EVERY 52 WEEKS
     Route: 042
     Dates: start: 20111124
  3. ACLASTA [Suspect]
     Dosage: 5 MG, ONCE EVERY 52 WEEKS
     Route: 042
     Dates: start: 20121121

REACTIONS (1)
  - Death [Fatal]
